FAERS Safety Report 13288070 (Version 1)
Quarter: 2017Q1

REPORT INFORMATION
  Report Type: Report from Study
  Country: JP (occurrence: JP)
  Receive Date: 20170302
  Receipt Date: 20170302
  Transmission Date: 20170428
  Serious: Yes (Hospitalization)
  Sender: FDA-Public Use
  Company Number: JP-DSJP-DSJ-2017-102152

PATIENT

DRUGS (32)
  1. EDOXABAN [Suspect]
     Active Substance: EDOXABAN TOSYLATE
     Dosage: 30 MG, QD
     Route: 048
     Dates: start: 20170106, end: 20170113
  2. NEXIUM [Concomitant]
     Active Substance: ESOMEPRAZOLE MAGNESIUM
     Dosage: 20MG/DAY
     Route: 048
     Dates: end: 20161226
  3. SENNOSIDE                          /00571901/ [Concomitant]
     Active Substance: SENNOSIDES A AND B
     Dosage: UNK UNK, AS NEEDED
     Route: 048
  4. CRAVIT [Concomitant]
     Active Substance: LEVOFLOXACIN
     Dosage: 500MG/DAY
     Route: 048
     Dates: start: 20161219, end: 20161220
  5. EDOXABAN [Suspect]
     Active Substance: EDOXABAN TOSYLATE
     Indication: ATRIAL FIBRILLATION
     Dosage: 60 MG, QD
     Route: 048
     Dates: start: 20161018, end: 20161220
  6. HEPARIN [Concomitant]
     Active Substance: HEPARIN SODIUM
     Dosage: 15000IU/DAY
     Route: 042
     Dates: start: 20161220, end: 20161221
  7. BEPRICOR TABLETS [Concomitant]
     Active Substance: BEPRIDIL
     Dosage: 50MG/DAY
     Route: 048
     Dates: start: 20161116, end: 20161220
  8. PROTERNOL-L [Concomitant]
     Indication: ATRIAL FIBRILLATION
     Dosage: 0.2MG/DAY
     Route: 042
     Dates: start: 20161115, end: 20161115
  9. CHOTOSAN [Concomitant]
     Active Substance: CALCIUM SULFATE\HERBALS
     Dosage: 7.5G/DAY
     Route: 048
     Dates: end: 20161214
  10. ASPENON [Concomitant]
     Active Substance: APRINDINE HYDROCHLORIDE
     Indication: ATRIAL FIBRILLATION
     Dosage: 20MG/DAY
     Route: 048
     Dates: end: 20161220
  11. FLIVAS [Concomitant]
     Active Substance: NAFTOPIDIL
     Dosage: 25MG/DAY
     Route: 048
     Dates: end: 20161220
  12. VERAPAMIL                          /00014302/ [Concomitant]
     Active Substance: VERAPAMIL HYDROCHLORIDE
     Indication: ATRIAL FIBRILLATION
     Dosage: 120MG/DAY
     Route: 048
     Dates: end: 20161115
  13. CEFTRIAXONE NA [Concomitant]
     Active Substance: CEFTRIAXONE
     Dosage: 2G/DAY
     Route: 042
     Dates: start: 20161229, end: 20170112
  14. AMLODIPINE                         /00972402/ [Concomitant]
     Active Substance: AMLODIPINE BESYLATE
     Dosage: 2.5MG/DAY
     Route: 048
     Dates: end: 20161226
  15. ISOCORONAL R [Concomitant]
     Active Substance: ISOSORBIDE DINITRATE
     Dosage: 40MG/DAY
     Route: 048
     Dates: end: 20161114
  16. URIEF [Concomitant]
     Active Substance: SILODOSIN
     Dosage: 4MG/DAY
     Route: 048
     Dates: start: 20161222
  17. EPHEDRINE                          /00021402/ [Concomitant]
     Active Substance: EPHEDRINE HYDROCHLORIDE
     Indication: ATRIAL FIBRILLATION
     Dosage: 40MG/DAY
     Route: 042
     Dates: start: 20161115, end: 20161115
  18. SULBACILLIN [Concomitant]
     Active Substance: AMPICILLIN SODIUM\SULBACTAM SODIUM
     Dosage: 4G/DAY
     Route: 042
     Dates: start: 20161219, end: 20161228
  19. LANSOPRAZOLE. [Concomitant]
     Active Substance: LANSOPRAZOLE
     Dosage: 30MG/DAY
     Route: 048
     Dates: start: 20161227
  20. SUNRYTHM [Concomitant]
     Active Substance: PILSICAINIDE HYDROCHLORIDE
     Indication: ATRIAL FIBRILLATION
     Dosage: 25MG/DAY
     Route: 048
     Dates: start: 20170104
  21. PREDONINE [Concomitant]
     Active Substance: PREDNISOLONE
     Dosage: 40MG/DAY
     Route: 042
     Dates: start: 20170104, end: 20170110
  22. ADETPHOS-L [Concomitant]
     Indication: ATRIAL FIBRILLATION
     Dosage: 40MG/DAY
     Route: 042
     Dates: start: 20161115, end: 20161115
  23. ATARAX-P                           /00058402/ [Concomitant]
     Active Substance: HYDROXYZINE HYDROCHLORIDE
     Indication: ATRIAL FIBRILLATION
     Dosage: 25MG/DAY
     Route: 042
     Dates: start: 20161115, end: 20161115
  24. PREDONINE [Concomitant]
     Active Substance: PREDNISOLONE
     Dosage: 30MG/DAY
     Route: 042
     Dates: start: 20170111, end: 20170117
  25. PREDONINE [Concomitant]
     Active Substance: PREDNISOLONE
     Dosage: 3MG/DAY
     Route: 048
     Dates: start: 20170112, end: 20170118
  26. PROPOFOL. [Concomitant]
     Active Substance: PROPOFOL
     Indication: ATRIAL FIBRILLATION
     Dosage: 1500MG/DAY
     Route: 042
     Dates: start: 20161115, end: 20161115
  27. ELIQUIS [Concomitant]
     Active Substance: APIXABAN
     Dosage: UNK
     Route: 048
     Dates: start: 20161013, end: 20161017
  28. ELIQUIS [Concomitant]
     Active Substance: APIXABAN
     Dosage: 5MG/DAY
     Route: 048
     Dates: start: 20170118
  29. NOVO HEPARIN [Concomitant]
     Active Substance: HEPARIN SODIUM
     Dosage: 15000IU/DAY
     Route: 042
     Dates: start: 20161115, end: 20161115
  30. EDOXABAN [Suspect]
     Active Substance: EDOXABAN TOSYLATE
     Dosage: 30 MG, QD
     Route: 048
     Dates: start: 20161222, end: 20161231
  31. LOSARHYD LD [Concomitant]
     Dosage: 1DF/DAY
     Route: 048
  32. CEFAZOLIN SODIUM. [Concomitant]
     Active Substance: CEFAZOLIN SODIUM
     Dosage: 1G/DAY
     Route: 042
     Dates: start: 20161115, end: 20161115

REACTIONS (3)
  - Pneumonia aspiration [Recovering/Resolving]
  - Haematuria [Recovered/Resolved]
  - Haematuria [Recovered/Resolved]

NARRATIVE: CASE EVENT DATE: 20161219
